FAERS Safety Report 16032235 (Version 1)
Quarter: 2019Q1

REPORT INFORMATION
  Report Type: Spontaneous
  Country: US (occurrence: US)
  Receive Date: 20190304
  Receipt Date: 20190304
  Transmission Date: 20190418
  Serious: Yes (Hospitalization, Other)
  Sender: FDA-Public Use
  Company Number: PHEH2019US008599

PATIENT
  Sex: Male

DRUGS (4)
  1. TEGRETOL [Suspect]
     Active Substance: CARBAMAZEPINE
     Indication: TRIGEMINAL NEURALGIA
     Dosage: 200 MG, UNK
     Route: 065
  2. TEGRETOL [Suspect]
     Active Substance: CARBAMAZEPINE
     Dosage: 800 MG, QD (200 MG, 200 MG AND 400 MG)
     Route: 065
  3. IBRANCE [Suspect]
     Active Substance: PALBOCICLIB
     Indication: PRODUCT USED FOR UNKNOWN INDICATION
     Dosage: UNK
     Route: 065
  4. TEMODAR [Suspect]
     Active Substance: TEMOZOLOMIDE
     Indication: PRODUCT USED FOR UNKNOWN INDICATION
     Dosage: 100 MG, QD
     Route: 065

REACTIONS (12)
  - Joint stiffness [Unknown]
  - Dizziness [Recovering/Resolving]
  - Fatigue [Unknown]
  - Syncope [Recovering/Resolving]
  - Vision blurred [Unknown]
  - Memory impairment [Unknown]
  - Drug ineffective [Unknown]
  - Gait disturbance [Unknown]
  - Weight decreased [Unknown]
  - Hypotension [Unknown]
  - Urine output increased [Unknown]
  - Fall [Unknown]
